FAERS Safety Report 10067174 (Version 14)
Quarter: 2014Q3

REPORT INFORMATION
  Report Type: Report from Study
  Country: US (occurrence: US)
  Receive Date: 20140409
  Receipt Date: 20140813
  Transmission Date: 20150326
  Serious: Yes (Hospitalization, Other)
  Sender: FDA-Public Use
  Company Number: US-ALEXION PHARMACEUTICALS INC.-A201401166

PATIENT

DRUGS (13)
  1. SOLIRIS [Suspect]
     Active Substance: ECULIZUMAB
     Indication: HAEMOLYTIC URAEMIC SYNDROME
     Dosage: 900 MG, 4 DAYS
     Route: 042
     Dates: start: 20140323
  2. CALCIUM ACETATE. [Concomitant]
     Active Substance: CALCIUM ACETATE
     Indication: PRODUCT USED FOR UNKNOWN INDICATION
     Dosage: UNK
     Route: 065
  3. METOPROLOL [Concomitant]
     Active Substance: METOPROLOL
     Indication: PRODUCT USED FOR UNKNOWN INDICATION
     Dosage: UNK
     Route: 065
  4. NEXIUM [Concomitant]
     Active Substance: ESOMEPRAZOLE MAGNESIUM
     Indication: PRODUCT USED FOR UNKNOWN INDICATION
     Dosage: UNK
     Route: 065
     Dates: start: 201406
  5. EPOETIN [Concomitant]
     Active Substance: ERYTHROPOIETIN
     Indication: PRODUCT USED FOR UNKNOWN INDICATION
     Dosage: UNK
     Route: 065
  6. INSULIN [Concomitant]
     Active Substance: INSULIN NOS
     Indication: DIABETES MELLITUS
     Dosage: UNK
     Route: 065
     Dates: start: 20140416
  7. AMLODIPINE [Concomitant]
     Active Substance: AMLODIPINE BESYLATE
     Indication: PRODUCT USED FOR UNKNOWN INDICATION
     Dosage: UNK
     Route: 065
  8. BACTRIM [Concomitant]
     Active Substance: SULFAMETHOXAZOLE\TRIMETHOPRIM
     Indication: PROPHYLAXIS
     Dosage: UNK
     Route: 048
     Dates: start: 201406
  9. ZEMPLAR [Concomitant]
     Active Substance: PARICALCITOL
     Indication: PRODUCT USED FOR UNKNOWN INDICATION
     Dosage: UNK
     Route: 065
  10. PREDNISONE. [Suspect]
     Active Substance: PREDNISONE
     Indication: CLOSTRIDIUM DIFFICILE INFECTION
     Dosage: 60 MG, UNK
     Route: 065
  11. ASA [Concomitant]
     Active Substance: ASPIRIN
     Indication: PRODUCT USED FOR UNKNOWN INDICATION
     Route: 065
  12. SOLIRIS [Suspect]
     Active Substance: ECULIZUMAB
     Dosage: 1200 MG, Q2W
     Route: 042
     Dates: start: 20140323
  13. PREDNISONE. [Suspect]
     Active Substance: PREDNISONE
     Indication: STEROID THERAPY
     Dosage: 10 MG, BID
     Route: 048
     Dates: start: 20140301

REACTIONS (51)
  - Thrombotic microangiopathy [Unknown]
  - Chest pain [Unknown]
  - Gait disturbance [Not Recovered/Not Resolved]
  - Fistula [Recovered/Resolved]
  - Clostridium difficile infection [Unknown]
  - Oedema peripheral [Recovering/Resolving]
  - Nausea [Recovered/Resolved]
  - Pulmonary haemorrhage [Unknown]
  - Retinopathy [Unknown]
  - Neuralgia [Not Recovered/Not Resolved]
  - Blood glucose abnormal [Recovered/Resolved]
  - Blood lactate dehydrogenase decreased [Unknown]
  - Peripheral swelling [Recovering/Resolving]
  - Brain natriuretic peptide increased [Unknown]
  - Hypertension [Recovered/Resolved]
  - Sepsis [Unknown]
  - Abdominal distension [Unknown]
  - Bacterial infection [Unknown]
  - Drug dose omission [None]
  - Eubacterium infection [None]
  - Herpes zoster [Not Recovered/Not Resolved]
  - Dyspnoea [Not Recovered/Not Resolved]
  - Pneumonia [Recovering/Resolving]
  - Sepsis [Unknown]
  - Vomiting [Recovered/Resolved]
  - Panic attack [Unknown]
  - Headache [Unknown]
  - Platelet count decreased [Unknown]
  - Pneumonitis [Not Recovered/Not Resolved]
  - Haematocrit abnormal [Unknown]
  - Rectal haemorrhage [Unknown]
  - Dyspnoea [Recovered/Resolved]
  - Fungal infection [Unknown]
  - Haematocrit decreased [Unknown]
  - Haemoglobin decreased [Unknown]
  - Vision blurred [Recovered/Resolved]
  - Depression [Unknown]
  - Abasia [Not Recovered/Not Resolved]
  - Blood creatinine increased [Unknown]
  - Pain in extremity [Unknown]
  - Bacteraemia [Not Recovered/Not Resolved]
  - Gastrointestinal haemorrhage [Recovering/Resolving]
  - Platelet count decreased [Recovering/Resolving]
  - Haemoglobin abnormal [Unknown]
  - Poor venous access [Unknown]
  - Troponin increased [Unknown]
  - Rash [Unknown]
  - Swelling [Not Recovered/Not Resolved]
  - Haemorrhage [Unknown]
  - Asthenia [Unknown]
  - Generalised oedema [None]

NARRATIVE: CASE EVENT DATE: 2014
